FAERS Safety Report 5911677-3 (Version None)
Quarter: 2008Q4

REPORT INFORMATION
  Report Type: 
  Country: None (occurrence: None)
  Receive Date: 20081007
  Receipt Date: 20080929
  Transmission Date: 20090506
  Serious: Yes (Other)
  Sender: FDA-Public Use
  Company Number: DE-ELI_LILLY_AND_COMPANY-DE200809006654

PATIENT
  Sex: Male
  Weight: 94 kg

DRUGS (2)
  1. BYETTA [Suspect]
     Dosage: UNK, UNKNOWN
     Route: 058
  2. RAMIPRIL [Concomitant]
     Indication: HYPERTENSION
     Dosage: 1.25 (UNITS NOT SPECIFIED), UNKNOWN
     Route: 048
     Dates: start: 20050614

REACTIONS (2)
  - ANGIOEDEMA [None]
  - RASH [None]
